FAERS Safety Report 10362276 (Version 1)
Quarter: 2014Q3

REPORT INFORMATION
  Report Type: Spontaneous
  Country: US (occurrence: US)
  Receive Date: 20140805
  Receipt Date: 20140805
  Transmission Date: 20150326
  Serious: No
  Sender: FDA-Public Use
  Company Number: US-THROMBOGENICS INC-JET-2014-335

PATIENT
  Sex: Female

DRUGS (1)
  1. JETREA [Suspect]
     Active Substance: OCRIPLASMIN
     Indication: PRODUCT USED FOR UNKNOWN INDICATION
     Dosage: 0.125 MG, ONE TIME DOSE
     Route: 031
     Dates: start: 201310, end: 201310

REACTIONS (5)
  - Nausea [Unknown]
  - Photophobia [Unknown]
  - Visual acuity tests abnormal [Recovered/Resolved]
  - Drug ineffective for unapproved indication [Unknown]
  - Headache [Unknown]
